FAERS Safety Report 11168284 (Version 1)
Quarter: 2015Q2

REPORT INFORMATION
  Report Type: Spontaneous
  Country: PE (occurrence: PE)
  Receive Date: 20150605
  Receipt Date: 20150605
  Transmission Date: 20150821
  Serious: Yes (Hospitalization)
  Sender: FDA-Public Use
  Company Number: PE-009507513-1506PER000977

PATIENT
  Age: 71 Year
  Sex: Female

DRUGS (1)
  1. JANUMET [Suspect]
     Active Substance: METFORMIN HYDROCHLORIDE\SITAGLIPTIN PHOSPHATE
     Dosage: ONE TABLET, DAILY, STRENGTH: 50/1000 UNITS NOT PROVIDED
     Route: 048
     Dates: start: 20150301

REACTIONS (4)
  - Cellulitis [Not Recovered/Not Resolved]
  - Inappropriate schedule of drug administration [Unknown]
  - Varicose vein [Not Recovered/Not Resolved]
  - Blood glucose decreased [Not Recovered/Not Resolved]

NARRATIVE: CASE EVENT DATE: 201503
